FAERS Safety Report 9782223 (Version 2)
Quarter: 2014Q1

REPORT INFORMATION
  Report Type: Spontaneous
  Country: GB (occurrence: GB)
  Receive Date: 20131226
  Receipt Date: 20140129
  Transmission Date: 20141002
  Serious: Yes (Other)
  Sender: FDA-Public Use
  Company Number: GB-JNJFOC-20131213805

PATIENT
  Sex: Female

DRUGS (3)
  1. NICORETTE INVISI PATCH [Suspect]
     Indication: SMOKING CESSATION THERAPY
     Route: 065
  2. NICORETTE INVISI PATCH [Suspect]
     Indication: SMOKING CESSATION THERAPY
     Route: 065
  3. NICORETTE INVISI PATCH [Suspect]
     Indication: SMOKING CESSATION THERAPY
     Route: 065

REACTIONS (3)
  - Suicidal ideation [Unknown]
  - Depressed mood [Unknown]
  - Abdominal distension [Unknown]
